FAERS Safety Report 11088197 (Version 2)
Quarter: 2015Q2

REPORT INFORMATION
  Report Type: Report from Study
  Country: GR (occurrence: GR)
  Receive Date: 20150504
  Receipt Date: 20150512
  Transmission Date: 20150821
  Serious: Yes (Death, Hospitalization)
  Sender: FDA-Public Use
  Company Number: GR-ABBVIE-15P-066-1385532-00

PATIENT
  Age: 70 Year
  Sex: Male

DRUGS (4)
  1. GLUCERNA SELECT [Concomitant]
     Indication: NUTRITIONAL SUPPLEMENTATION
     Route: 050
  2. DUODOPA [Suspect]
     Active Substance: CARBIDOPA\LEVODOPA
     Indication: PARKINSON^S DISEASE
     Dosage: MORNING DOSE: 12 ML,CONTINUOUS RATE: 4.6 ML/H,EXTRA DOSE: 2.3 ML
     Route: 050
     Dates: start: 20150301, end: 20150502
  3. CORTINEFF [Concomitant]
     Indication: HYPOTENSION
     Route: 048
  4. NEUROBION [Concomitant]
     Active Substance: CYANOCOBALAMIN\PYRIDOXINE\THIAMINE
     Indication: PRODUCT USED FOR UNKNOWN INDICATION

REACTIONS (5)
  - Blood urea increased [Fatal]
  - Blood creatinine increased [Fatal]
  - Acute kidney injury [Fatal]
  - Blood pressure increased [Fatal]
  - Loss of consciousness [Fatal]

NARRATIVE: CASE EVENT DATE: 20150430
